FAERS Safety Report 8804977 (Version 1)
Quarter: 2012Q4

REPORT INFORMATION
  Report Type: 
  Country: US (occurrence: US)
  Receive Date: 20120924
  Receipt Date: 20120924
  Transmission Date: 20130627
  Serious: Yes (Other)
  Sender: FDA-Public Use
  Company Number: US-PFIZER INC-2012233652

PATIENT
  Sex: Female

DRUGS (3)
  1. ZOLOFT [Suspect]
     Dosage: UNK
     Dates: start: 1994
  2. SERTRALINE HCL [Suspect]
     Dosage: UNK
  3. CELEBREX [Suspect]
     Dosage: UNK

REACTIONS (5)
  - Renal failure [Unknown]
  - Diabetes mellitus [Unknown]
  - Hypoaesthesia teeth [Unknown]
  - Postpartum stress disorder [Unknown]
  - Head injury [Unknown]
